FAERS Safety Report 9704940 (Version 2)
Quarter: 2013Q4

REPORT INFORMATION
  Report Type: Report from Study
  Country: ZA (occurrence: ZA)
  Receive Date: 20131122
  Receipt Date: 20131130
  Transmission Date: 20140711
  Serious: Yes (Death, Hospitalization, Other)
  Sender: FDA-Public Use
  Company Number: PHHY2013ZA134042

PATIENT
  Age: 66 Year
  Sex: Female

DRUGS (8)
  1. ACLASTA [Suspect]
     Indication: OSTEOPOROSIS
     Dosage: 5 MG/100ML
     Route: 042
     Dates: start: 2009
  2. ACLASTA [Suspect]
     Dosage: 5 MG/100ML
     Route: 042
     Dates: start: 2010
  3. ACLASTA [Suspect]
     Dosage: 5 MG/100ML
     Route: 042
     Dates: start: 2011
  4. ACLASTA [Suspect]
     Dosage: 5 MG/100ML
     Route: 042
     Dates: start: 2012
  5. SERETIDE [Concomitant]
     Indication: ASTHMA
     Dosage: UNK
  6. DUOVENT [Concomitant]
     Indication: ASTHMA
     Dosage: UNK
  7. DUOVENT [Concomitant]
     Indication: EMPHYSEMA
  8. VITAMIN D [Concomitant]
     Indication: BLOOD CALCIUM ABNORMAL
     Dosage: UNK

REACTIONS (10)
  - Respiratory disorder [Fatal]
  - Coma [Unknown]
  - Bronchitis chronic [Unknown]
  - Pneumonia [Unknown]
  - Heart rate increased [Recovered/Resolved]
  - Heart rate decreased [Unknown]
  - Myocardial infarction [Unknown]
  - Haemoglobin decreased [Not Recovered/Not Resolved]
  - Dyspnoea [Not Recovered/Not Resolved]
  - Asthma [Not Recovered/Not Resolved]
